FAERS Safety Report 5810437-1 (Version None)
Quarter: 2008Q3

REPORT INFORMATION
  Report Type: 
  Country: None (occurrence: None)
  Receive Date: 20080715
  Receipt Date: 20080709
  Transmission Date: 20090109
  Serious: Yes (Hospitalization)
  Sender: FDA-Public Use
  Company Number: US-TYCO HEALTHCARE/MALLINCKRODT-T200801137

PATIENT

DRUGS (1)
  1. OXYCODONE HCL [Suspect]
     Dosage: 15 MG, UNK
     Dates: start: 20080613

REACTIONS (2)
  - ATRIAL FIBRILLATION [None]
  - PRURITUS GENERALISED [None]
